FAERS Safety Report 16349996 (Version 1)
Quarter: 2019Q2

REPORT INFORMATION
  Report Type: Report from Study
  Country: BR (occurrence: BR)
  Receive Date: 20190523
  Receipt Date: 20190523
  Transmission Date: 20190711
  Serious: Yes (Hospitalization, Other)
  Sender: FDA-Public Use
  Company Number: PHHY2014BR056887

PATIENT
  Age: 57 Year
  Sex: Female
  Weight: 56 kg

DRUGS (34)
  1. AEROLIN [Concomitant]
     Active Substance: ALBUTEROL
     Indication: LUNG DISORDER
     Dosage: 100 MG, BID (PUFF)
     Route: 055
     Dates: start: 2013
  2. XOLAIR [Suspect]
     Active Substance: OMALIZUMAB
     Dosage: 300 MG, QMO
     Route: 058
     Dates: start: 20170517
  3. ALENIA (BUDESONIDE; FORMOTEROL) [Concomitant]
     Active Substance: BUDESONIDE\FORMOTEROL FUMARATE
     Indication: COUGH
     Dosage: 2 DF, TID (STARTED 3 MONTHS AGO)
     Route: 055
  4. MORPHINE [Concomitant]
     Active Substance: MORPHINE
     Indication: SLEEP DISORDER
  5. BUSONID [Concomitant]
     Active Substance: BUDESONIDE
     Indication: NASAL DRYNESS
  6. CLENIL [Concomitant]
     Active Substance: BECLOMETHASONE DIPROPIONATE
     Indication: RHINITIS ALLERGIC
     Dosage: 30 MG, UNK
     Route: 055
  7. AMINOPHYLLINE. [Concomitant]
     Active Substance: AMINOPHYLLINE
     Indication: ASTHMA
     Dosage: 10 MG, QD (6 DF)
     Route: 048
  8. AMINOPHYLLINE. [Concomitant]
     Active Substance: AMINOPHYLLINE
     Indication: DYSPNOEA
     Dosage: 100 MG, TID
     Route: 048
  9. MORPHINE [Concomitant]
     Active Substance: MORPHINE
     Indication: PAIN
     Dosage: 1 DF, QD (STARTED TWO MONTHS AGO)
     Route: 048
  10. XOLAIR [Suspect]
     Active Substance: OMALIZUMAB
     Dosage: 150 MG, QMO (2 AMPOULES) (ONE IN EACH ARM)
     Route: 058
  11. SALBUTAMOL [Concomitant]
     Active Substance: ALBUTEROL
     Indication: LUNG DISORDER
     Dosage: 1 DF (1 PUFF), BID
     Route: 065
  12. BUSONID [Concomitant]
     Active Substance: BUDESONIDE
     Indication: RHINITIS ALLERGIC
     Dosage: 1 DF, BID (2 PUFFS IN THE MORNING AND AT NIGHT))
     Route: 065
  13. BECLOSOL [Concomitant]
     Active Substance: BECLOMETHASONE DIPROPIONATE
     Indication: ASTHMA
     Dosage: 2 DF (SPRAYS IN EACH NOSTRIL), QD
     Route: 045
     Dates: start: 2013
  14. CLENIL [Concomitant]
     Active Substance: BECLOMETHASONE DIPROPIONATE
     Indication: LUNG DISORDER
     Dosage: 50 MG, UNK
     Route: 055
  15. XOLAIR [Suspect]
     Active Substance: OMALIZUMAB
     Dosage: 300 MG, QMO
     Route: 058
  16. ENALAPRIL [Suspect]
     Active Substance: ENALAPRIL
     Indication: HYPERTENSION
     Dosage: UNK
     Route: 065
  17. SINGULAIR [Concomitant]
     Active Substance: MONTELUKAST SODIUM
     Indication: ASTHMA
     Dosage: 2 DF, QD
     Route: 048
     Dates: start: 2013
  18. LOSARTAN. [Suspect]
     Active Substance: LOSARTAN
     Indication: HYPERTENSION
     Dosage: 50 MG, BID
     Route: 048
  19. SERETIDE [Concomitant]
     Active Substance: FLUTICASONE PROPIONATE\SALMETEROL XINAFOATE
     Indication: LUNG DISORDER
     Dosage: 1 DF, (1 PUFF, IN MORNING AND AT NIGHT), BID
     Route: 065
  20. AEROLIN [Concomitant]
     Active Substance: ALBUTEROL
     Indication: ASTHMA
     Dosage: 120 MG, TID (3 INHALATIONS)
     Route: 055
  21. AEROLIN [Concomitant]
     Active Substance: ALBUTEROL
     Indication: COUGH
     Dosage: 240 MG, TID (2 INHALATIONS)
     Route: 055
  22. MONTELUKAST [Concomitant]
     Active Substance: MONTELUKAST SODIUM
     Indication: LUNG INFECTION
     Dosage: 2 DF, TID (STARTED SINCE SHE WAS 22 YEARS OLD)
     Route: 048
     Dates: start: 2017
  23. METICORTEN [Concomitant]
     Active Substance: PREDNISONE
     Indication: PULMONARY PAIN
     Dosage: 1 DF, QD (SINCE SHE WAS 22 YEARS OLD)
     Route: 048
  24. XOLAIR [Suspect]
     Active Substance: OMALIZUMAB
     Dosage: 2 DF, QMO
     Route: 058
  25. XOLAIR [Suspect]
     Active Substance: OMALIZUMAB
     Dosage: 150 MG, EVERY 4 WEEKS
     Route: 058
     Dates: start: 20181228
  26. ADVEL [Concomitant]
     Indication: HEADACHE
     Dosage: SPORADICALLY
     Route: 065
  27. CLENIL [Concomitant]
     Active Substance: BECLOMETHASONE DIPROPIONATE
     Indication: ASTHMA
     Dosage: 250 MG, QD (3 INHALATIONS/DAY) (AT NIGHT)
     Route: 055
  28. OMEPRAZOLE. [Concomitant]
     Active Substance: OMEPRAZOLE
     Indication: GASTROINTESTINAL DISORDER PROPHYLAXIS
     Dosage: 2 DF, QD
     Route: 048
     Dates: start: 201705
  29. XOLAIR [Suspect]
     Active Substance: OMALIZUMAB
     Indication: ASTHMA
     Dosage: 300 MG, QMO (150 MG, 2 AMPOULES/MONTH)
     Route: 058
     Dates: start: 20130601
  30. XOLAIR [Suspect]
     Active Substance: OMALIZUMAB
     Dosage: 150 MG, EVERY 4 WEEKS
     Route: 058
     Dates: start: 20181001
  31. CLENIL [Concomitant]
     Active Substance: BECLOMETHASONE DIPROPIONATE
     Indication: NASAL DRYNESS
  32. FORMOCAPS [Concomitant]
     Active Substance: FORMOTEROL FUMARATE
     Indication: ASTHMA
     Dosage: 10 MG, QD (1 INHALATION)
     Route: 055
  33. FORMOCAPS [Concomitant]
     Active Substance: FORMOTEROL FUMARATE
     Dosage: 12 UG, QD (DOSE OF 3 INHALATIONS/DAY)
     Route: 055
  34. BUDESONIDE. [Concomitant]
     Active Substance: BUDESONIDE
     Indication: NASAL DISORDER
     Dosage: 1 DF, QD (ONE PUFF INEACH NOSTRIL)
     Route: 055

REACTIONS (19)
  - Bronchitis [Recovered/Resolved]
  - Malaise [Recovered/Resolved]
  - Cough [Recovering/Resolving]
  - Dyspnoea [Recovering/Resolving]
  - Sensitivity to weather change [Unknown]
  - Glucose tolerance impaired [Recovering/Resolving]
  - Dyspnoea exertional [Recovered/Resolved]
  - Fatigue [Recovering/Resolving]
  - Myocardial infarction [Recovered/Resolved]
  - Malaise [Recovering/Resolving]
  - Visual impairment [Not Recovered/Not Resolved]
  - Chest pain [Recovering/Resolving]
  - Dyspnoea [Recovered/Resolved]
  - Influenza [Recovered/Resolved]
  - Asthmatic crisis [Recovered/Resolved]
  - Asthma [Recovering/Resolving]
  - Epistaxis [Recovering/Resolving]
  - Gastrooesophageal reflux disease [Recovering/Resolving]
  - Insomnia [Recovering/Resolving]

NARRATIVE: CASE EVENT DATE: 201505
